FAERS Safety Report 5975833-0 (Version None)
Quarter: 2008Q4

REPORT INFORMATION
  Report Type: 
  Country: None (occurrence: None)
  Receive Date: 20081202
  Receipt Date: 20081126
  Transmission Date: 20090506
  Serious: Yes (Death)
  Sender: FDA-Public Use
  Company Number: A0713313A

PATIENT
  Age: 78 Year
  Sex: Female
  Weight: 73.6 kg

DRUGS (8)
  1. AVANDIA [Suspect]
     Dosage: 4MG PER DAY
     Route: 048
     Dates: start: 20010312, end: 20060209
  2. HUMULIN [Concomitant]
  3. INSULIN [Concomitant]
  4. LEVOXYL [Concomitant]
     Dosage: .1MG PER DAY
  5. CLOTRIMAZOLE [Concomitant]
  6. MYCELEX [Concomitant]
     Dosage: 10MG FIVE TIMES PER DAY
  7. PRANDIN [Concomitant]
     Dosage: 2MG THREE TIMES PER DAY
  8. ASACOL [Concomitant]
     Dosage: 400MG TWICE PER DAY

REACTIONS (1)
  - MYOCARDIAL INFARCTION [None]
